FAERS Safety Report 4476593-5 (Version None)
Quarter: 2004Q4

REPORT INFORMATION
  Report Type: 
  Country: None (occurrence: None)
  Receive Date: 20041013
  Receipt Date: 20041001
  Transmission Date: 20050328
  Serious: Yes (Death)
  Sender: FDA-Public Use
  Company Number: HQWYE542605OCT04

PATIENT
  Age: 66 Year
  Sex: 0

DRUGS (1)
  1. PRIMATENE MIST [Suspect]
     Dosage: INHALATION
     Route: 055

REACTIONS (2)
  - INTENTIONAL MISUSE [None]
  - INTENTIONAL OVERDOSE [None]
